FAERS Safety Report 19072599 (Version 1)
Quarter: 2021Q1

REPORT INFORMATION
  Report Type: Spontaneous
  Country: US (occurrence: US)
  Receive Date: 20210330
  Receipt Date: 20210330
  Transmission Date: 20210420
  Serious: No
  Sender: FDA-Public Use
  Company Number: None

PATIENT
  Age: 41 Year
  Sex: Female
  Weight: 141.75 kg

DRUGS (9)
  1. RIZATRIPTAN. [Concomitant]
     Active Substance: RIZATRIPTAN
  2. VITAMIN D [Concomitant]
     Active Substance: VITAMIN D NOS
  3. GABAPENTIN. [Concomitant]
     Active Substance: GABAPENTIN
  4. XYREM [Concomitant]
     Active Substance: SODIUM OXYBATE
  5. CPAP DEVICE [Concomitant]
  6. ATENOLOL. [Concomitant]
     Active Substance: ATENOLOL
  7. NP THYROID [Suspect]
     Active Substance: LEVOTHYROXINE\LIOTHYRONINE
     Indication: AUTOIMMUNE THYROIDITIS
     Dosage: ?          QUANTITY:1 TABLET(S);?
     Route: 048
     Dates: start: 20201108, end: 20210329
  8. ESTRADIOL. [Concomitant]
     Active Substance: ESTRADIOL
  9. GENERIC ANTIHISTAMINE [Concomitant]

REACTIONS (4)
  - Product substitution issue [None]
  - Product odour abnormal [None]
  - Loss of personal independence in daily activities [None]
  - Product taste abnormal [None]

NARRATIVE: CASE EVENT DATE: 20210101
